FAERS Safety Report 18698475 (Version 1)
Quarter: 2021Q1

REPORT INFORMATION
  Report Type: Spontaneous
  Country: US (occurrence: US)
  Receive Date: 20210104
  Receipt Date: 20210104
  Transmission Date: 20210419
  Serious: Yes (Death, Disabling, Other)
  Sender: FDA-Public Use
  Company Number: US-PURDUE-USA-2020-0186860

PATIENT
  Sex: Female

DRUGS (1)
  1. OXYCONTIN [Suspect]
     Active Substance: OXYCODONE HYDROCHLORIDE
     Indication: PRODUCT USED FOR UNKNOWN INDICATION
     Dosage: UNK
     Route: 048

REACTIONS (7)
  - Death [Fatal]
  - Hepatitis B [Unknown]
  - Exposure during pregnancy [Unknown]
  - Hepatic cirrhosis [Unknown]
  - Overdose [Unknown]
  - Drug withdrawal syndrome [Unknown]
  - Drug dependence [Unknown]
